FAERS Safety Report 10554316 (Version 1)
Quarter: 2014Q4

REPORT INFORMATION
  Report Type: Spontaneous
  Country: US (occurrence: None)
  Receive Date: 20141029
  Receipt Date: 20141029
  Transmission Date: 20150529
  Serious: No
  Sender: FDA-Public Use
  Company Number: None

PATIENT
  Age: 57 Year
  Sex: Male

DRUGS (1)
  1. PROCRIT [Suspect]
     Active Substance: ERYTHROPOIETIN
     Dosage: STRENGTH: 40,000, INJECTABLE

REACTIONS (2)
  - Nipple pain [None]
  - Nipple swelling [None]

NARRATIVE: CASE EVENT DATE: 20141027
